FAERS Safety Report 4516348-6 (Version None)
Quarter: 2004Q4

REPORT INFORMATION
  Report Type: 
  Country: None (occurrence: None)
  Receive Date: 20041202
  Receipt Date: 20040921
  Transmission Date: 20050328
  Serious: No
  Sender: FDA-Public Use
  Company Number: US-GLAXOSMITHKLINE-A0526710A

PATIENT
  Age: 69 Year
  Sex: Female

DRUGS (1)
  1. AUGMENTIN '125' [Suspect]
     Dosage: 500MG TWICE PER DAY
     Route: 048
     Dates: start: 20040504, end: 20040509

REACTIONS (3)
  - DYSPHAGIA [None]
  - DYSPNOEA [None]
  - URTICARIA [None]
